FAERS Safety Report 11970347 (Version 1)
Quarter: 2016Q1

REPORT INFORMATION
  Report Type: Spontaneous
  Country: US (occurrence: None)
  Receive Date: 20160127
  Receipt Date: 20160127
  Transmission Date: 20160526
  Serious: Yes (Other)
  Sender: FDA-Public Use
  Company Number: None

PATIENT
  Age: 45 Year
  Sex: Female

DRUGS (1)
  1. GLEEVEC [Suspect]
     Active Substance: IMATINIB MESYLATE
     Dosage: 1QD
     Route: 048

REACTIONS (4)
  - Nasopharyngitis [None]
  - Skin disorder [None]
  - Fatigue [None]
  - Impaired healing [None]

NARRATIVE: CASE EVENT DATE: 20160126
